FAERS Safety Report 15497510 (Version 3)
Quarter: 2018Q4

REPORT INFORMATION
  Report Type: Spontaneous
  Country: US (occurrence: US)
  Receive Date: 20181015
  Receipt Date: 20181129
  Transmission Date: 20190205
  Serious: Yes (Death, Hospitalization, Other)
  Sender: FDA-Public Use
  Company Number: US-009507513-1810USA004864

PATIENT
  Sex: Male

DRUGS (14)
  1. CLONAZEPAM. [Concomitant]
     Active Substance: CLONAZEPAM
  2. VALACYCLOVIR HYDROCHLORIDE. [Concomitant]
     Active Substance: VALACYCLOVIR HYDROCHLORIDE
  3. LEVETIRACETAM. [Concomitant]
     Active Substance: LEVETIRACETAM
  4. OXYCODONE HYDROCHLORIDE. [Concomitant]
     Active Substance: OXYCODONE HYDROCHLORIDE
  5. SERTRALINE HYDROCHLORIDE. [Concomitant]
     Active Substance: SERTRALINE HYDROCHLORIDE
  6. ZIRGAN [Concomitant]
     Active Substance: GANCICLOVIR
  7. LANTUS [Concomitant]
     Active Substance: INSULIN GLARGINE
  8. INTRON A [Suspect]
     Active Substance: INTERFERON ALFA-2B
     Dosage: STRENGTH 5MU/0.5ML 25MU MDV, DOSE 1 ML (10 MIU) UNDER THE SKIN, 3 TIMES WEEKLY
     Route: 058
     Dates: start: 20180822
  9. INTRON A [Suspect]
     Active Substance: INTERFERON ALFA-2B
     Dosage: UNK
  10. TEMOZOLOMIDE. [Concomitant]
     Active Substance: TEMOZOLOMIDE
  11. DEXAMETHASONE. [Concomitant]
     Active Substance: DEXAMETHASONE
  12. VIMPAT [Concomitant]
     Active Substance: LACOSAMIDE
  13. HUMALOG [Concomitant]
     Active Substance: INSULIN LISPRO
  14. CYCLOPENTOLATE HYDROCHLORIDE. [Concomitant]
     Active Substance: CYCLOPENTOLATE HYDROCHLORIDE

REACTIONS (3)
  - Seizure [Unknown]
  - Disease progression [Fatal]
  - Brain oedema [Unknown]

NARRATIVE: CASE EVENT DATE: 2018
